FAERS Safety Report 14852631 (Version 2)
Quarter: 2018Q2

REPORT INFORMATION
  Report Type: Spontaneous
  Country: AT (occurrence: AT)
  Receive Date: 20180507
  Receipt Date: 20180525
  Transmission Date: 20180711
  Serious: Yes (Other)
  Sender: FDA-Public Use
  Company Number: AT-PFIZER INC-2018178318

PATIENT
  Age: 54 Year
  Sex: Female

DRUGS (1)
  1. AMLODIPINE BESILATE [Suspect]
     Active Substance: AMLODIPINE BESYLATE
     Indication: HYPERTENSION
     Dosage: UNK
     Route: 048

REACTIONS (7)
  - Photophobia [Unknown]
  - Blood pressure abnormal [Unknown]
  - Scintillating scotoma [Unknown]
  - Tachycardia [Unknown]
  - Angina pectoris [Unknown]
  - Hypertensive crisis [Unknown]
  - Migraine [Unknown]

NARRATIVE: CASE EVENT DATE: 2017
